FAERS Safety Report 5727310-X (Version None)
Quarter: 2008Q2

REPORT INFORMATION
  Report Type: 
  Country: None (occurrence: None)
  Receive Date: 20080505
  Receipt Date: 20080423
  Transmission Date: 20081010
  Serious: Yes (Death)
  Sender: FDA-Public Use
  Company Number: US-SP-2008-01005

PATIENT
  Age: 52 Year
  Sex: Male

DRUGS (3)
  1. BOTULISM AB [Suspect]
     Indication: BOTULISM
     Route: 042
     Dates: start: 20070729
  2. BOTULISM AB [Suspect]
     Route: 042
     Dates: start: 20070729
  3. BOTULISM ANTITOXIN ABE [Suspect]
     Indication: BOTULISM
     Route: 042
     Dates: start: 20070729

REACTIONS (4)
  - INJECTION SITE ERYTHEMA [None]
  - INJECTION SITE INFLAMMATION [None]
  - INJECTION SITE WARMTH [None]
  - PULMONARY EMBOLISM [None]
